FAERS Safety Report 13157687 (Version 7)
Quarter: 2018Q2

REPORT INFORMATION
  Report Type: Report from Study
  Country: FR (occurrence: FR)
  Receive Date: 20170127
  Receipt Date: 20180504
  Transmission Date: 20180711
  Serious: Yes (Hospitalization)
  Sender: FDA-Public Use
  Company Number: FR-ROCHE-1881652

PATIENT
  Age: 71 Year
  Sex: Male
  Weight: 76.6 kg

DRUGS (10)
  1. NAB-PACLITAXEL [Suspect]
     Active Substance: PACLITAXEL
     Indication: NON-SMALL CELL LUNG CANCER STAGE IV
     Dosage: DAYS 1, 8, AND 15 OF EACH 21-DAY CYCLE. ON 03/JAN/2017 AT 13:22, THE PATIENT RECEIVED THE MOST RECEN
     Route: 042
     Dates: start: 20161121
  2. ZYRTEC [Concomitant]
     Active Substance: CETIRIZINE HYDROCHLORIDE
     Indication: PRURITUS
     Route: 065
     Dates: start: 2017
  3. ATEZOLIZUMAB. [Suspect]
     Active Substance: ATEZOLIZUMAB
     Indication: NON-SMALL CELL LUNG CANCER STAGE IV
     Dosage: DAY 1 OF EACH 21-DAY CYCLE. ON 03/JAN/2017 AT 11:33, THE PATIENT RECEIVED THE MOST RECENT DOSE OF AT
     Route: 042
     Dates: start: 20161121
  4. AMOXICILLINE [Concomitant]
     Active Substance: AMOXICILLIN
     Indication: DYSPNOEA
     Route: 065
     Dates: start: 20170106, end: 20170208
  5. TAVANIC [Concomitant]
     Active Substance: LEVOFLOXACIN
     Indication: DYSPNOEA
     Route: 065
     Dates: start: 20170118, end: 20170208
  6. TRAMADOL. [Concomitant]
     Active Substance: TRAMADOL
     Indication: BACK PAIN
     Route: 065
     Dates: start: 201704, end: 20171012
  7. ROCEPHINE [Concomitant]
     Active Substance: CEFTRIAXONE SODIUM
     Indication: DYSPNOEA
     Route: 065
     Dates: start: 20170118, end: 20170208
  8. DAFALGAN [Concomitant]
     Active Substance: ACETAMINOPHEN
     Indication: BACK PAIN
     Route: 065
     Dates: start: 201704, end: 201704
  9. CARBOPLATIN. [Suspect]
     Active Substance: CARBOPLATIN
     Indication: NON-SMALL CELL LUNG CANCER STAGE IV
     Dosage: ADMINISTERED OVER 15-30 MINUTES TO ACHIEVE AN INITIAL TARGET AREA UNDER THE CONCENTRATION-TIME CURVE
     Route: 042
     Dates: start: 20161121
  10. INNOHEP [Concomitant]
     Active Substance: TINZAPARIN SODIUM
     Indication: PHLEBITIS
     Route: 065
     Dates: start: 20160920

REACTIONS (1)
  - Lung infection [Recovered/Resolved]

NARRATIVE: CASE EVENT DATE: 20170116
